FAERS Safety Report 22043993 (Version 1)
Quarter: 2023Q1

REPORT INFORMATION
  Report Type: Spontaneous
  Country: US (occurrence: None)
  Receive Date: 20230228
  Receipt Date: 20230228
  Transmission Date: 20230418
  Serious: No
  Sender: FDA-Public Use
  Company Number: 2023A043136

PATIENT
  Sex: Female

DRUGS (3)
  1. SEROQUEL [Suspect]
     Active Substance: QUETIAPINE FUMARATE
     Route: 048
  2. METRONIDAZOLE [Suspect]
     Active Substance: METRONIDAZOLE
  3. PREMARIN [Suspect]
     Active Substance: ESTROGENS, CONJUGATED

REACTIONS (10)
  - Hypersensitivity [Unknown]
  - Dyspnoea [Unknown]
  - Somnolence [Unknown]
  - Galactorrhoea [Unknown]
  - Tremor [Unknown]
  - Palpitations [Unknown]
  - Tachyphrenia [Unknown]
  - Cardiac discomfort [Unknown]
  - Rash [Unknown]
  - Product use issue [Unknown]
